FAERS Safety Report 13717414 (Version 1)
Quarter: 2017Q3

REPORT INFORMATION
  Report Type: Report from Study
  Country: GR (occurrence: GR)
  Receive Date: 20170705
  Receipt Date: 20170705
  Transmission Date: 20171127
  Serious: Yes (Other)
  Sender: FDA-Public Use
  Company Number: GR-EMD SERONO-8166559

PATIENT
  Age: 28 Year
  Sex: Female

DRUGS (1)
  1. REBIF [Suspect]
     Active Substance: INTERFERON BETA-1A
     Indication: MULTIPLE SCLEROSIS
     Dosage: TITRATION DOSE
     Dates: start: 20170605

REACTIONS (5)
  - Drug dose omission [Unknown]
  - Aspartate aminotransferase increased [Unknown]
  - Blood lactate dehydrogenase increased [Unknown]
  - Alanine aminotransferase increased [Unknown]
  - Gamma-glutamyltransferase increased [Unknown]

NARRATIVE: CASE EVENT DATE: 20170626
